FAERS Safety Report 5081950-2 (Version None)
Quarter: 2006Q3

REPORT INFORMATION
  Report Type: 
  Country: None (occurrence: None)
  Receive Date: 20060811
  Receipt Date: 20060726
  Transmission Date: 20061208
  Serious: Yes (Hospitalization, Other)
  Sender: FDA-Public Use
  Company Number: PHBS2006NO11328

PATIENT
  Age: 54 Year
  Sex: Female

DRUGS (2)
  1. CYCLOSPORINE [Suspect]
     Indication: RENAL TRANSPLANT
     Dosage: 10 MG/KG/D
  2. MYCOPHENOLATE MOFETIL [Concomitant]

REACTIONS (7)
  - CHRONIC ALLOGRAFT NEPHROPATHY [None]
  - DISEASE RECURRENCE [None]
  - HAEMOLYTIC URAEMIC SYNDROME [None]
  - KIDNEY TRANSPLANT REJECTION [None]
  - SEROMA [None]
  - WOUND [None]
  - WOUND DEHISCENCE [None]
